FAERS Safety Report 18394267 (Version 1)
Quarter: 2020Q4

REPORT INFORMATION
  Report Type: Spontaneous
  Country: AU (occurrence: AU)
  Receive Date: 20201016
  Receipt Date: 20201016
  Transmission Date: 20210114
  Serious: Yes (Death, Other)
  Sender: FDA-Public Use
  Company Number: AU-009507513-1905AUS013383

PATIENT
  Age: 72 Year
  Sex: Male
  Weight: 59 kg

DRUGS (1)
  1. KEYTRUDA [Suspect]
     Active Substance: PEMBROLIZUMAB
     Indication: MALIGNANT MELANOMA
     Dosage: 2 MILLIGRAM/KILOGRAM, 3-WEEKLY
     Route: 042
     Dates: start: 20170621, end: 20171010

REACTIONS (2)
  - Cerebrovascular accident [Fatal]
  - Colitis [Recovered/Resolved]

NARRATIVE: CASE EVENT DATE: 20171010
